FAERS Safety Report 9646418 (Version 1)
Quarter: 2013Q4

REPORT INFORMATION
  Report Type: Spontaneous
  Country: GB (occurrence: GB)
  Receive Date: 20131025
  Receipt Date: 20131025
  Transmission Date: 20140711
  Serious: Yes (Other)
  Sender: FDA-Public Use
  Company Number: PHHY2013GB117683

PATIENT
  Age: 36 Year
  Sex: Male

DRUGS (6)
  1. TRAMADOL [Suspect]
     Indication: DRUG ABUSE
     Dosage: UNK (300 MG - 800 MG)
     Route: 048
     Dates: start: 20110518
  2. METHADONE HYDROCHLORIDE [Concomitant]
  3. MIRTAZAPINE [Concomitant]
  4. BETAMETHASONE VALERATE [Concomitant]
  5. ZEROBASE//PARAFFIN, LIQUID [Concomitant]
  6. HYDROCORTISONE [Concomitant]

REACTIONS (2)
  - Drug abuse [Unknown]
  - Drug dependence [Unknown]
